FAERS Safety Report 7675531-1 (Version None)
Quarter: 2011Q3

REPORT INFORMATION
  Report Type: 
  Country: None (occurrence: None)
  Receive Date: 20110810
  Receipt Date: 20110801
  Transmission Date: 20111222
  Serious: Yes (Other)
  Sender: FDA-Public Use
  Company Number: US-BAYER-2011-028287

PATIENT
  Age: 20 Year
  Sex: Female
  Weight: 58.957 kg

DRUGS (9)
  1. MULTI-VITAMIN [Concomitant]
     Dosage: UNK UNK, QD
     Dates: start: 20040101
  2. ALLEGRA [Concomitant]
     Dosage: 180 MG, PRN
     Dates: start: 20081105
  3. ALLEGRA [Concomitant]
     Dosage: 180 MG, PRN
     Dates: start: 20071121
  4. ALLEGRA [Concomitant]
     Indication: SEASONAL ALLERGY
     Dosage: 180 MG, PRN
     Dates: start: 20070602, end: 20070712
  5. ALLEGRA [Concomitant]
     Dosage: 180 MG, PRN
     Dates: start: 20090211, end: 20090914
  6. YAZ [Suspect]
     Indication: MENSTRUAL CYCLE MANAGEMENT
     Dosage: UNK
     Dates: start: 20090401, end: 20091118
  7. ALLEGRA [Concomitant]
     Dosage: 180 MG, PRN
     Dates: start: 20091108
  8. ALLEGRA [Concomitant]
     Dosage: 180 MG, PRN
     Dates: start: 20080228
  9. ALLEGRA [Concomitant]
     Dosage: 180 MG, PRN
     Dates: start: 20080607

REACTIONS (3)
  - CHOLECYSTITIS CHRONIC [None]
  - ABDOMINAL PAIN [None]
  - CHOLECYSTECTOMY [None]
